FAERS Safety Report 6674083-2 (Version None)
Quarter: 2010Q2

REPORT INFORMATION
  Report Type: 
  Country: None (occurrence: None)
  Receive Date: 20100409
  Receipt Date: 20100329
  Transmission Date: 20101027
  Serious: Yes (Death)
  Sender: FDA-Public Use
  Company Number: KR-BRISTOL-MYERS SQUIBB COMPANY-15040801

PATIENT
  Age: 33 Year
  Sex: Male

DRUGS (4)
  1. CYCLOPHOSPHAMIDE [Suspect]
     Indication: CASTLEMAN'S DISEASE
     Dosage: 1DF-800MG/M SUSP(2)
  2. VINCRISTINE SULFATE [Suspect]
     Indication: CASTLEMAN'S DISEASE
     Dosage: 1DF-1.4MG/M SUSP(2)ON DAY 1
  3. PREDNISOLONE [Suspect]
     Indication: CASTLEMAN'S DISEASE
  4. DEXAMETHASONE [Suspect]

REACTIONS (14)
  - ACIDOSIS [None]
  - ALANINE AMINOTRANSFERASE INCREASED [None]
  - ASPARTATE AMINOTRANSFERASE INCREASED [None]
  - BLOOD ALKALINE PHOSPHATASE INCREASED [None]
  - BLOOD BILIRUBIN INCREASED [None]
  - BLOOD BILIRUBIN UNCONJUGATED INCREASED [None]
  - CONDITION AGGRAVATED [None]
  - CONTINUOUS HAEMODIAFILTRATION [None]
  - DRUG INEFFECTIVE [None]
  - HYPOTENSION [None]
  - MULTI-ORGAN FAILURE [None]
  - PANCYTOPENIA [None]
  - RENAL FAILURE [None]
  - TUMOUR LYSIS SYNDROME [None]
